FAERS Safety Report 13022197 (Version 2)
Quarter: 2017Q1

REPORT INFORMATION
  Report Type: Spontaneous
  Country: US (occurrence: US)
  Receive Date: 20161213
  Receipt Date: 20170120
  Transmission Date: 20170428
  Serious: No
  Sender: FDA-Public Use
  Company Number: US-PFIZER INC-2016564645

PATIENT
  Age: 37 Year
  Sex: Female

DRUGS (3)
  1. ALAVERT ALLERGY [Suspect]
     Active Substance: LORATADINE
     Indication: EYE PRURITUS
  2. ALAVERT ALLERGY [Suspect]
     Active Substance: LORATADINE
     Indication: SNEEZING
     Dosage: 10 MG, UNK
     Dates: start: 201612
  3. ALAVERT ALLERGY [Suspect]
     Active Substance: LORATADINE
     Indication: RHINORRHOEA

REACTIONS (1)
  - Drug ineffective [Recovered/Resolved]

NARRATIVE: CASE EVENT DATE: 201612
